FAERS Safety Report 16756342 (Version 1)
Quarter: 2019Q4

REPORT INFORMATION
  Report Type: Spontaneous
  Country: US (occurrence: US)
  Receive Date: 20190829
  Receipt Date: 20190829
  Transmission Date: 20200122
  Serious: Yes (Hospitalization)
  Sender: FDA-Public Use
  Company Number: None

PATIENT
  Age: 59 Year
  Sex: Female

DRUGS (1)
  1. LORTAB [Suspect]
     Active Substance: ACETAMINOPHEN\HYDROCODONE BITARTRATE
     Indication: INTESTINAL RESECTION
     Dates: start: 19970501, end: 20190310

REACTIONS (2)
  - Myocardial infarction [None]
  - Hypertension [None]

NARRATIVE: CASE EVENT DATE: 20190313
